FAERS Safety Report 5119994-4 (Version None)
Quarter: 2006Q3

REPORT INFORMATION
  Report Type: 
  Country: None (occurrence: None)
  Receive Date: 20060929
  Receipt Date: 20060914
  Transmission Date: 20061208
  Serious: Yes (Other)
  Sender: FDA-Public Use
  Company Number: S06-HRV-03932-01

PATIENT
  Age: 44 Year
  Sex: Female
  Weight: 110 kg

DRUGS (2)
  1. CIPRALEX (ESCITALOPRAM) [Suspect]
     Indication: BIPOLAR I DISORDER
     Dosage: 10 MG QD PO
     Route: 048
  2. ZYPREXA [Suspect]
     Indication: BIPOLAR I DISORDER
     Dosage: 5 MG QD PO
     Route: 048

REACTIONS (1)
  - OBESITY [None]
